FAERS Safety Report 10515021 (Version 1)
Quarter: 2014Q4

REPORT INFORMATION
  Report Type: Spontaneous
  Country: JP (occurrence: JP)
  Receive Date: 20141013
  Receipt Date: 20141013
  Transmission Date: 20150528
  Serious: Yes (Other)
  Sender: FDA-Public Use
  Company Number: PHHY2014JP132783

PATIENT
  Age: 98 Year
  Sex: Female

DRUGS (1)
  1. EXELON PATCH [Suspect]
     Active Substance: RIVASTIGMINE
     Indication: DEMENTIA ALZHEIMER^S TYPE
     Dosage: 13.5 MG, DAILY
     Route: 062

REACTIONS (2)
  - Amylase increased [Recovered/Resolved]
  - Dyskinesia [Recovered/Resolved]
